FAERS Safety Report 10779854 (Version 1)
Quarter: 2015Q1

REPORT INFORMATION
  Report Type: Spontaneous
  Country: US (occurrence: None)
  Receive Date: 20150206
  Receipt Date: 20150206
  Transmission Date: 20150721
  Serious: Yes (Other)
  Sender: FDA-Public Use
  Company Number: None

PATIENT
  Age: 62 Year
  Sex: Female

DRUGS (17)
  1. ADEMPAS [Suspect]
     Active Substance: RIOCIGUAT
     Indication: PULMONARY ARTERIAL HYPERTENSION
     Route: 048
  2. OXYCODONE (ROXICODONE) [Concomitant]
  3. TRACLEER [Concomitant]
     Active Substance: BOSENTAN\BOSENTAN MONOHYDRATE
  4. ADEMPAS [Concomitant]
     Active Substance: RIOCIGUAT
  5. AMOXICILLIN. [Concomitant]
     Active Substance: AMOXICILLIN
  6. ALBUTEROL (PROVENTIL/VENTOLIN) [Concomitant]
  7. ADEMPAS [Suspect]
     Active Substance: RIOCIGUAT
     Indication: HEART DISEASE CONGENITAL
     Route: 048
  8. ZANAFLEX [Concomitant]
     Active Substance: TIZANIDINE HYDROCHLORIDE
  9. IPRATROPIIUM-ALBUTEROL (COMBIVENT RESPIMAT) [Concomitant]
  10. IPRATROPIUM (ATROVENT) [Concomitant]
  11. OXYCODONE (ROXICODONE) [Concomitant]
  12. AMOXICILLIN. [Concomitant]
     Active Substance: AMOXICILLIN
  13. DOCUSATE SODIIUM (COLACE) [Concomitant]
  14. SENNOSIDES (SENNA) [Concomitant]
  15. MEGESTROL (MEGACE) [Concomitant]
  16. AMIODARONE (CORADARONE) [Concomitant]
  17. OXYCODONE (ROXICODONE) [Concomitant]

REACTIONS (2)
  - Respiratory tract congestion [None]
  - Dyspnoea [None]

NARRATIVE: CASE EVENT DATE: 20150122
